FAERS Safety Report 23386766 (Version 2)
Quarter: 2024Q1

REPORT INFORMATION
  Report Type: Report from Study
  Country: US (occurrence: US)
  Receive Date: 20240110
  Receipt Date: 20240122
  Transmission Date: 20240410
  Serious: No
  Sender: FDA-Public Use
  Company Number: US-TAKEDA-2024TUS000866

PATIENT

DRUGS (16)
  1. VEDOLIZUMAB [Suspect]
     Active Substance: VEDOLIZUMAB
     Indication: Crohn^s disease
     Dosage: 300 MILLIGRAM
     Route: 042
     Dates: start: 202311
  2. SYNTHROID [Concomitant]
     Active Substance: LEVOTHYROXINE SODIUM
     Dosage: 88 MICROGRAM
  3. LIOTHYRONINE SODIUM [Concomitant]
     Active Substance: LIOTHYRONINE SODIUM
     Dosage: 5 MICROGRAM
  4. NALTREXONE [Concomitant]
     Active Substance: NALTREXONE
     Indication: Inflammation
     Dosage: 3 MILLIGRAM
  5. OMEPRAZOLE [Concomitant]
     Active Substance: OMEPRAZOLE
     Dosage: 20 MILLIGRAM, BID
  6. ESTRADIOL [Concomitant]
     Active Substance: ESTRADIOL
     Indication: Hormone therapy
     Dosage: UNK
  7. MAGNESIUM [Concomitant]
     Active Substance: MAGNESIUM
     Dosage: UNK
  8. PROGESTERONE [Concomitant]
     Active Substance: PROGESTERONE
     Dosage: UNK
  9. DIAZEPAM [Concomitant]
     Active Substance: DIAZEPAM
     Dosage: UNK
  10. VITAMIN D [Concomitant]
     Active Substance: VITAMIN D NOS
     Dosage: UNK
  11. ZINC [Concomitant]
     Active Substance: PYRITHIONE ZINC\ZINC\ZINC CHLORIDE
     Dosage: UNK
  12. VITAMIN C [Concomitant]
     Active Substance: ASCORBIC ACID
     Dosage: UNK
  13. KRILL OIL [Concomitant]
     Active Substance: DIETARY SUPPLEMENT\KRILL OIL
     Dosage: UNK
  14. GLUTAMINE [Concomitant]
     Active Substance: GLUTAMINE
     Dosage: UNK
  15. VITAMIN A [Concomitant]
     Active Substance: VITAMIN A
     Dosage: UNK
  16. TYLENOL [Concomitant]
     Active Substance: ACETAMINOPHEN
     Indication: Premedication
     Dosage: UNK

REACTIONS (38)
  - Illness [Unknown]
  - Thyroid disorder [Unknown]
  - Cushingoid [Unknown]
  - Feeling abnormal [Unknown]
  - Pain [Unknown]
  - Eye swelling [Unknown]
  - Dry eye [Unknown]
  - Dry throat [Unknown]
  - Peripheral swelling [Unknown]
  - Sleep disorder [Unknown]
  - Nasal dryness [Unknown]
  - Dry mouth [Unknown]
  - Myalgia [Unknown]
  - Dyspnoea [Unknown]
  - Decreased immune responsiveness [Unknown]
  - Emotional distress [Unknown]
  - Oral disorder [Unknown]
  - Epstein-Barr virus infection [Unknown]
  - Burning sensation [Unknown]
  - Pain of skin [Unknown]
  - Ear disorder [Unknown]
  - Secretion discharge [Unknown]
  - Neck pain [Unknown]
  - Alopecia [Unknown]
  - Chest pain [Unknown]
  - Dizziness [Unknown]
  - Hot flush [Unknown]
  - Abdominal pain [Unknown]
  - Constipation [Unknown]
  - Infusion site pain [Unknown]
  - Back pain [Unknown]
  - Rash [Unknown]
  - Headache [Unknown]
  - Arthralgia [Unknown]
  - Fatigue [Unknown]
  - Nausea [Unknown]
  - Pyrexia [Unknown]
  - Pain in extremity [Unknown]
